FAERS Safety Report 9032566 (Version 2)
Quarter: 2013Q1

REPORT INFORMATION
  Report Type: Spontaneous
  Country: US (occurrence: US)
  Receive Date: 20130122
  Receipt Date: 20130304
  Transmission Date: 20140127
  Serious: No
  Sender: FDA-Public Use
  Company Number: US-PFIZER INC-2013022740

PATIENT
  Age: 42 Year
  Sex: Female

DRUGS (3)
  1. MORPHINE SULFATE [Suspect]
     Indication: GALLBLADDER PAIN
     Dosage: UNK
     Route: 042
     Dates: start: 20040814, end: 20040814
  2. VICODIN [Suspect]
     Dosage: UNK
     Route: 048
  3. PRENATAL VITAMINS [Concomitant]

REACTIONS (2)
  - Drug hypersensitivity [Unknown]
  - Heart rate decreased [Unknown]
